FAERS Safety Report 8898450 (Version 2)
Quarter: 2012Q4

REPORT INFORMATION
  Report Type: 
  Country: US (occurrence: US)
  Receive Date: 20121109
  Receipt Date: 20121123
  Transmission Date: 20130627
  Serious: No
  Sender: FDA-Public Use
  Company Number: US-PFIZER INC-2012280053

PATIENT
  Age: 74 Year
  Sex: Female
  Weight: 53.06 kg

DRUGS (5)
  1. LYRICA [Suspect]
     Indication: NEUROPATHY PERIPHERAL
     Dosage: 75 mg, UNK
     Route: 048
     Dates: start: 201211, end: 201211
  2. LYRICA [Suspect]
     Indication: LOW BACK PAIN
     Dosage: 75 mg, daily
     Dates: start: 20121120
  3. LYRICA [Suspect]
     Indication: NUMBNESS IN FEET
  4. CRESTOR [Concomitant]
     Indication: HIGH CHOLESTEROL
     Dosage: 5 mg, daily
  5. CLONAZEPAM [Concomitant]
     Indication: SLEEP PROBLEM
     Dosage: 1 mg, as needed

REACTIONS (4)
  - Dry mouth [Unknown]
  - Inappropriate schedule of drug administration [Unknown]
  - Wrong technique in drug usage process [Unknown]
  - Insomnia [Unknown]
